FAERS Safety Report 7213164-1 (Version None)
Quarter: 2011Q1

REPORT INFORMATION
  Report Type: 
  Country: None (occurrence: None)
  Receive Date: 20110106
  Receipt Date: 20100412
  Transmission Date: 20110831
  Serious: Yes (Hospitalization)
  Sender: FDA-Public Use
  Company Number: DE-CELGENEUS-062-21880-10010968

PATIENT
  Age: 63 Year
  Sex: Male
  Weight: 94 kg

DRUGS (8)
  1. HUMALOG [Concomitant]
     Dosage: DEPENDING ON BLOOD SUGAR
     Route: 065
  2. PANTOZOL [Concomitant]
     Route: 065
  3. ZOMETA [Concomitant]
     Route: 051
  4. BELOC ZOK [Concomitant]
     Route: 065
  5. REVLIMID [Suspect]
     Indication: PLASMACYTOMA
     Route: 048
     Dates: start: 20080812, end: 20091116
  6. DEXAMETHASONE [Concomitant]
     Indication: PLASMACYTOMA
     Route: 048
     Dates: start: 20080812, end: 20091116
  7. CLEXANE [Concomitant]
     Indication: PROPHYLAXIS
     Route: 065
     Dates: start: 20080812
  8. REVLIMID [Suspect]
     Route: 048
     Dates: start: 20091201

REACTIONS (1)
  - SARCOMA [None]
